FAERS Safety Report 10391887 (Version 2)
Quarter: 2014Q3

REPORT INFORMATION
  Report Type: Spontaneous
  Country: US (occurrence: US)
  Receive Date: 20140819
  Receipt Date: 20140828
  Transmission Date: 20150326
  Serious: Yes (Other)
  Sender: FDA-Public Use
  Company Number: CHPA2014US010543

PATIENT
  Age: 53 Year
  Sex: Female

DRUGS (1)
  1. K-MART STEP 1 21 MG 14 [Suspect]
     Active Substance: NICOTINE
     Indication: SMOKING CESSATION THERAPY
     Dosage: 1 DF, UNK
     Route: 062
     Dates: start: 201407

REACTIONS (4)
  - Drug administered at inappropriate site [Unknown]
  - Lip disorder [Recovered/Resolved]
  - Furuncle [Recovered/Resolved]
  - Carbuncle [Recovered/Resolved]

NARRATIVE: CASE EVENT DATE: 201407
